FAERS Safety Report 15376748 (Version 1)
Quarter: 2018Q3

REPORT INFORMATION
  Report Type: Report from Study
  Country: None (occurrence: US)
  Receive Date: 20180913
  Receipt Date: 20180913
  Transmission Date: 20181010
  Serious: Yes (Death, Hospitalization, Other)
  Sender: FDA-Public Use
  Company Number: US-ABBVIE-18S-163-2482316-00

PATIENT
  Age: 89 Year
  Sex: Male
  Weight: 88.53 kg

DRUGS (1)
  1. CREON [Suspect]
     Active Substance: PANCRELIPASE AMYLASE\PANCRELIPASE LIPASE\PANCRELIPASE PROTEASE
     Indication: PANCREATITIS CHRONIC
     Dosage: 2 TABLETS BEFORE EACH MEAL AND SNACK= 6 TABLETS/DAY
     Route: 048
     Dates: start: 2016, end: 201809

REACTIONS (9)
  - Bradycardia [Fatal]
  - Septic shock [Fatal]
  - Fall [Not Recovered/Not Resolved]
  - Clavicle fracture [Not Recovered/Not Resolved]
  - Infection [Not Recovered/Not Resolved]
  - Skin ulcer [Not Recovered/Not Resolved]
  - Asthenia [Not Recovered/Not Resolved]
  - General physical health deterioration [Not Recovered/Not Resolved]
  - Osteomalacia [Unknown]

NARRATIVE: CASE EVENT DATE: 2018
